FAERS Safety Report 14099877 (Version 1)
Quarter: 2017Q4

REPORT INFORMATION
  Report Type: Spontaneous
  Country: US (occurrence: US)
  Receive Date: 20171017
  Receipt Date: 20171017
  Transmission Date: 20180321
  Serious: No
  Sender: FDA-Public Use
  Company Number: US-ASTRAZENECA-2017SF05444

PATIENT
  Sex: Male

DRUGS (2)
  1. CRESTOR [Suspect]
     Active Substance: ROSUVASTATIN CALCIUM
     Dosage: GENERIC
     Route: 065
  2. CRESTOR [Suspect]
     Active Substance: ROSUVASTATIN CALCIUM
     Route: 048

REACTIONS (1)
  - Faeces discoloured [Unknown]
